FAERS Safety Report 6148950-2 (Version None)
Quarter: 2009Q2

REPORT INFORMATION
  Report Type: 
  Country: None (occurrence: None)
  Receive Date: 20090406
  Receipt Date: 20090330
  Transmission Date: 20091009
  Serious: Yes (Hospitalization)
  Sender: FDA-Public Use
  Company Number: POMP-1000532

PATIENT
  Age: 11 Month
  Sex: Male

DRUGS (1)
  1. MYOZYME [Suspect]
     Indication: GLYCOGEN STORAGE DISEASE TYPE II
     Dosage: INTRAVENOUS
     Route: 042
     Dates: start: 20080704, end: 20090302

REACTIONS (5)
  - BLOOD IMMUNOGLOBULIN G [None]
  - METAPNEUMOVIRUS INFECTION [None]
  - OBLITERATIVE BRONCHIOLITIS [None]
  - RESPIRATORY FAILURE [None]
  - THERAPEUTIC RESPONSE DECREASED [None]
